FAERS Safety Report 15210528 (Version 2)
Quarter: 2018Q3

REPORT INFORMATION
  Report Type: Report from Study
  Country: None (occurrence: US)
  Receive Date: 20180727
  Receipt Date: 20180903
  Transmission Date: 20181010
  Serious: Yes (Other)
  Sender: FDA-Public Use
  Company Number: US-ABBVIE-18K-163-2386426-00

PATIENT
  Age: 60 Year
  Sex: Female
  Weight: 90.8 kg

DRUGS (9)
  1. HUMIRA [Suspect]
     Active Substance: ADALIMUMAB
     Indication: CROHN^S DISEASE
     Route: 058
  2. IMURAN [Concomitant]
     Active Substance: AZATHIOPRINE
     Indication: CROHN^S DISEASE
  3. GLUCOSAMINE [Concomitant]
     Active Substance: GLUCOSAMINE
     Indication: ARTHRALGIA
  4. UBIQUINOL [Concomitant]
     Active Substance: UBIQUINOL
     Indication: CARDIAC DISORDER
  5. ASPIRIN. [Concomitant]
     Active Substance: ASPIRIN
     Indication: CARDIAC DISORDER
  6. KRILL OIL [Concomitant]
     Active Substance: DIETARY SUPPLEMENT
     Indication: CARDIAC DISORDER
  7. NIACIN. [Concomitant]
     Active Substance: NIACIN
     Indication: BLOOD CHOLESTEROL INCREASED
  8. VITAMIN D3 [Concomitant]
     Active Substance: CHOLECALCIFEROL
     Indication: VITAMIN SUPPLEMENTATION
  9. MAGNESIUM [Concomitant]
     Active Substance: MAGNESIUM
     Indication: ROUTINE HEALTH MAINTENANCE

REACTIONS (8)
  - Basal cell carcinoma [Unknown]
  - Basal cell carcinoma [Recovered/Resolved]
  - Hiatus hernia [Unknown]
  - Skin haemorrhage [Recovered/Resolved]
  - Gastrooesophageal reflux disease [Unknown]
  - Inflammation [Unknown]
  - Gastritis [Unknown]
  - Polyp [Unknown]

NARRATIVE: CASE EVENT DATE: 2017
